FAERS Safety Report 9664859 (Version 2)
Quarter: 2014Q1

REPORT INFORMATION
  Report Type: Report from Study
  Country: US (occurrence: US)
  Receive Date: 20131101
  Receipt Date: 20140307
  Transmission Date: 20141002
  Serious: Yes (Other)
  Sender: FDA-Public Use
  Company Number: US-ABBVIE-13P-163-1161893-00

PATIENT
  Age: 56 Year
  Sex: Female
  Weight: 77.18 kg

DRUGS (13)
  1. HUMIRA [Suspect]
     Indication: RHEUMATOID ARTHRITIS
     Dates: start: 201211
  2. NAPROSYN [Concomitant]
     Indication: RHEUMATOID ARTHRITIS
  3. METHOTREXATE [Concomitant]
     Indication: RHEUMATOID ARTHRITIS
     Dosage: 6 TABLETS EVERY WEDNESDAY
  4. TOPROL [Concomitant]
     Indication: HYPERTENSION
  5. LOSARTAN POTASSIUM [Concomitant]
     Indication: HYPERTENSION
  6. LOTREL [Concomitant]
     Indication: BLOOD PRESSURE
     Dosage: 10/20MG CAP DAILY
  7. FUROSEMIDE [Concomitant]
     Indication: DIURETIC THERAPY
  8. VIVELLE DOT [Concomitant]
     Indication: HORMONE REPLACEMENT THERAPY
     Dosage: PATCH
     Route: 062
  9. FOLIC ACID [Concomitant]
     Indication: RHEUMATOID ARTHRITIS
  10. SIMVASTATIN [Concomitant]
     Indication: BLOOD CHOLESTEROL
  11. DIOVAN [Concomitant]
  12. HYDROCHLOROTHIAZIDE [Concomitant]
  13. NORFLEX [Concomitant]

REACTIONS (5)
  - Synovial cyst [Not Recovered/Not Resolved]
  - Meniscus injury [Not Recovered/Not Resolved]
  - Joint swelling [Not Recovered/Not Resolved]
  - Arthralgia [Not Recovered/Not Resolved]
  - Fall [Not Recovered/Not Resolved]
